FAERS Safety Report 6781348-2 (Version None)
Quarter: 2010Q2

REPORT INFORMATION
  Report Type: 
  Country: None (occurrence: None)
  Receive Date: 20100621
  Receipt Date: 20100617
  Transmission Date: 20101027
  Serious: Yes (Death, Other)
  Sender: FDA-Public Use
  Company Number: PHHY2010GB22850

PATIENT
  Sex: Male

DRUGS (5)
  1. CLOZARIL [Suspect]
     Indication: SCHIZOPHRENIA
     Dosage: 300 MG
     Route: 048
     Dates: start: 19950815
  2. AMISULPRIDE [Concomitant]
     Indication: ANXIOLYTIC THERAPY
     Dosage: 400 MG, BID
  3. LITHIUM CARBONATE CAP [Concomitant]
     Indication: DEPRESSION
     Dosage: 1 G, QD
     Route: 048
  4. CITALOPRAM [Concomitant]
     Indication: DEPRESSION
     Dosage: 20 MG, QD
     Route: 048
  5. CHOLESTEROL- AND TRIGLYCERIDE REDUCERS [Concomitant]
     Route: 048

REACTIONS (5)
  - CHEST PAIN [None]
  - DEEP VEIN THROMBOSIS [None]
  - DYSPNOEA [None]
  - PULMONARY EMBOLISM [None]
  - TYPE 2 DIABETES MELLITUS [None]
